FAERS Safety Report 16258174 (Version 2)
Quarter: 2019Q2

REPORT INFORMATION
  Report Type: Spontaneous
  Country: US (occurrence: US)
  Receive Date: 20190430
  Receipt Date: 20190530
  Transmission Date: 20190711
  Serious: No
  Sender: FDA-Public Use
  Company Number: US-ASTRAZENECA-2014SE15234

PATIENT
  Age: 62 Year
  Sex: Female
  Weight: 81.6 kg

DRUGS (2)
  1. BYDUREON BCISE [Suspect]
     Active Substance: EXENATIDE
     Indication: TYPE 2 DIABETES MELLITUS
     Route: 058
     Dates: start: 2018
  2. BYDUREON [Suspect]
     Active Substance: EXENATIDE
     Indication: TYPE 2 DIABETES MELLITUS
     Dosage: ONCE A WEEK
     Route: 058
     Dates: end: 2018

REACTIONS (8)
  - Injection site bruising [Unknown]
  - Injection site pain [Not Recovered/Not Resolved]
  - Device issue [Unknown]
  - Headache [Unknown]
  - Constipation [Unknown]
  - Injection site swelling [Unknown]
  - Injection site pruritus [Unknown]
  - Diarrhoea [Unknown]

NARRATIVE: CASE EVENT DATE: 2018
